FAERS Safety Report 8554038-3 (Version None)
Quarter: 2012Q3

REPORT INFORMATION
  Report Type: 
  Country: None (occurrence: None)
  Receive Date: 20120731
  Receipt Date: 20120723
  Transmission Date: 20120928
  Serious: Yes (Other)
  Sender: FDA-Public Use
  Company Number: JP-VERTEX PHARMACEUTICALS INC.-AE-2012-008976

PATIENT
  Age: 55 Year
  Sex: Female

DRUGS (14)
  1. RIBAVIRIN [Concomitant]
     Route: 048
     Dates: start: 20120703, end: 20120709
  2. RIBAVIRIN [Concomitant]
     Indication: HEPATITIS C
     Route: 048
     Dates: start: 20120417, end: 20120507
  3. RIBAVIRIN [Concomitant]
     Route: 048
     Dates: start: 20120710
  4. URSO 250 [Concomitant]
     Indication: CHOLELITHIASIS
     Route: 048
  5. TELAVIC (TELAPREVIR) [Suspect]
     Indication: HEPATITIS C
     Route: 048
     Dates: start: 20120417
  6. RIBAVIRIN [Concomitant]
     Route: 048
     Dates: start: 20120508, end: 20120514
  7. MAGLAX [Concomitant]
     Route: 048
     Dates: start: 20120508
  8. RIBAVIRIN [Concomitant]
     Route: 048
     Dates: start: 20120619, end: 20120702
  9. PEGINTERFERON ALFA-2B [Concomitant]
     Indication: HEPATITIS C
     Route: 058
     Dates: start: 20120417
  10. CLARITIN [Concomitant]
     Route: 048
     Dates: start: 20120421
  11. RIBAVIRIN [Concomitant]
     Route: 048
     Dates: start: 20120529, end: 20120618
  12. ALLOPURINOL [Concomitant]
     Indication: HYPERURICAEMIA
     Dates: start: 20120619
  13. ASTOMIN [Concomitant]
     Indication: COUGH
     Route: 048
     Dates: start: 20120529
  14. TALION OD [Concomitant]
     Route: 048
     Dates: start: 20120626

REACTIONS (1)
  - WHITE BLOOD CELL COUNT DECREASED [None]
